FAERS Safety Report 8070994 (Version 9)
Quarter: 2015Q4

REPORT INFORMATION
  Report Type: Report from Study
  Country: US (occurrence: US)
  Receive Date: 20110805
  Receipt Date: 20151110
  Transmission Date: 20160305
  Serious: Yes (Death, Life-Threatening, Hospitalization, Other)
  Sender: FDA-Public Use
  Company Number: US-AMGEN-USACT2011038789

PATIENT
  Age: 18 Year
  Sex: Female
  Weight: 71.7 kg

DRUGS (3)
  1. TACROLIMUS. [Concomitant]
     Active Substance: TACROLIMUS
  2. ETANERCEPT [Suspect]
     Active Substance: ETANERCEPT
     Indication: GRAFT VERSUS HOST DISEASE
     Dosage: 25 MG, 2 TIMES/WK
     Route: 058
     Dates: start: 20110516, end: 20110704
  3. MEDROL [Concomitant]
     Active Substance: METHYLPREDNISOLONE
     Dosage: UNK
     Dates: start: 20110531, end: 20110728

REACTIONS (2)
  - Acute graft versus host disease [Fatal]
  - Hypoxia [Not Recovered/Not Resolved]

NARRATIVE: CASE EVENT DATE: 20110529
